FAERS Safety Report 20521190 (Version 1)
Quarter: 2022Q1

REPORT INFORMATION
  Report Type: Spontaneous
  Country: US (occurrence: US)
  Receive Date: 20220226
  Receipt Date: 20220226
  Transmission Date: 20220423
  Serious: No
  Sender: FDA-Public Use
  Company Number: US-SA-SAC20220218000527

PATIENT
  Sex: Male

DRUGS (4)
  1. DUPIXENT [Suspect]
     Active Substance: DUPILUMAB
     Indication: Dermatitis atopic
     Dosage: 300 MG, QOW
     Route: 058
     Dates: start: 20200312
  2. FLUTICASONE [Concomitant]
     Active Substance: FLUTICASONE
     Dosage: 50 MG
  3. OXAPROZIN [Concomitant]
     Active Substance: OXAPROZIN
     Dosage: 600 MG
  4. SILDENAFIL [Concomitant]
     Active Substance: SILDENAFIL
     Dosage: 20MG

REACTIONS (1)
  - Asthma [Recovering/Resolving]
